FAERS Safety Report 12966133 (Version 1)
Quarter: 2016Q4

REPORT INFORMATION
  Report Type: Spontaneous
  Country: US (occurrence: US)
  Receive Date: 20161122
  Receipt Date: 20161122
  Transmission Date: 20170207
  Serious: Yes (Hospitalization)
  Sender: FDA-Public Use
  Company Number: US-SAGE PRODUCTS, LLC-1059967

PATIENT
  Age: 86 Year
  Sex: Male
  Weight: 81.82 kg

DRUGS (1)
  1. COMFORT SHIELD BARRIER [Suspect]
     Active Substance: DIMETHICONE
     Indication: INCONTINENCE
     Route: 061

REACTIONS (5)
  - Application site rash [Unknown]
  - Product use issue [None]
  - Urinary tract infection [Recovered/Resolved]
  - Infection [Recovered/Resolved]
  - Product contamination microbial [None]
